FAERS Safety Report 7497761-4 (Version None)
Quarter: 2011Q2

REPORT INFORMATION
  Report Type: 
  Country: None (occurrence: None)
  Receive Date: 20110524
  Receipt Date: 20110512
  Transmission Date: 20111010
  Serious: Yes (Other)
  Sender: FDA-Public Use
  Company Number: DE-AMGEN-DEUCT2011026180

PATIENT
  Age: 67 Year
  Sex: Female
  Weight: 80 kg

DRUGS (12)
  1. BETAHISTINE [Concomitant]
     Indication: HYPERTENSION
     Dosage: 24 MG, UNK
  2. VITAMIN A [Concomitant]
     Indication: OSTEOPOROSIS
     Dosage: 800 IU, UNK
  3. METHOTREXATE [Concomitant]
     Indication: RHEUMATOID ARTHRITIS
     Dosage: 7.5 MG, UNK
     Dates: start: 20091001
  4. FLUNARIZINE [Concomitant]
     Dosage: 5 MG, UNK
  5. PREDNISOLONE [Concomitant]
     Dosage: 2.5 MG, UNK
     Dates: start: 20100101
  6. CALCIUM CARBONATE [Concomitant]
     Indication: OSTEOPOROSIS
     Dosage: 1000 MG, UNK
  7. METOPROLOL SUCCINATE [Concomitant]
     Indication: HYPERTENSION
     Dosage: 47.5 MG, UNK
  8. ENBREL [Suspect]
     Indication: RHEUMATOID ARTHRITIS
     Dosage: 50 MG, QWK
     Dates: start: 20091028
  9. PREDNISOLONE [Concomitant]
     Indication: RHEUMATOID ARTHRITIS
     Dosage: 12.5 MG, UNK
     Dates: end: 20090101
  10. PREDNISOLONE [Concomitant]
     Dosage: 5 MG, UNK
     Dates: start: 20090101, end: 20100101
  11. OMEPRAZOLE [Concomitant]
     Dosage: 20 MG, UNK
  12. AMITRIPTYLINE HCL [Concomitant]
     Indication: HYPERTENSION
     Dosage: 25 MG, UNK

REACTIONS (1)
  - STOMATITIS [None]
